FAERS Safety Report 12481485 (Version 1)
Quarter: 2016Q2

REPORT INFORMATION
  Report Type: Spontaneous
  Country: NO (occurrence: NO)
  Receive Date: 20160620
  Receipt Date: 20160620
  Transmission Date: 20160815
  Serious: Yes (Other)
  Sender: FDA-Public Use
  Company Number: NO-009507513-1606NOR008283

PATIENT
  Age: 86 Year
  Sex: Female

DRUGS (1)
  1. ALENDRONATE SODIUM. [Suspect]
     Active Substance: ALENDRONATE SODIUM
     Indication: RHEUMATOID ARTHRITIS
     Dosage: UNKNOWN DOSAGE
     Route: 048

REACTIONS (2)
  - Osteonecrosis of jaw [Unknown]
  - Osteitis [Unknown]

NARRATIVE: CASE EVENT DATE: 20140519
